FAERS Safety Report 8675800 (Version 2)
Quarter: 2013Q4

REPORT INFORMATION
  Report Type: Spontaneous
  Country: CA (occurrence: CA)
  Receive Date: 20120720
  Receipt Date: 20131204
  Transmission Date: 20140711
  Serious: Yes (Other)
  Sender: FDA-Public Use
  Company Number: CA-ASTRAZENECA-2012SE48196

PATIENT
  Age: 65 Year
  Sex: Male
  Weight: 77.1 kg

DRUGS (5)
  1. CRESTOR [Suspect]
     Route: 048
  2. CRESTOR [Suspect]
     Dosage: GENERIC (COBALT PHARMACEUTICALS), 40.0 MILLIGRAM, DAILY
     Route: 048
     Dates: start: 20120629, end: 20120701
  3. CRESTOR [Suspect]
     Dosage: GENERIC (COBALT PHARMACEUTICALS)
     Route: 048
     Dates: start: 20120710
  4. VALSARTAN HCT ^SANDOZ^ [Concomitant]
     Indication: HYPERTENSION
     Dosage: 160/25 MG 8 AM
     Route: 048
     Dates: start: 2008
  5. TIAZAC XC [Concomitant]
     Indication: HYPERTENSION
     Route: 048
     Dates: start: 2010

REACTIONS (2)
  - Vertigo [Not Recovered/Not Resolved]
  - Dizziness [Not Recovered/Not Resolved]
